FAERS Safety Report 4274883-2 (Version None)
Quarter: 2004Q1

REPORT INFORMATION
  Report Type: 
  Country: None (occurrence: None)
  Receive Date: 20040116
  Receipt Date: 20040113
  Transmission Date: 20041129
  Serious: Yes (Hospitalization)
  Sender: FDA-Public Use
  Company Number: MK200401-0117-1

PATIENT
  Age: 82 Year
  Sex: Female

DRUGS (11)
  1. ANAFRANIL CAP [Suspect]
     Dosage: 50MG, DAILY
     Dates: start: 20020701, end: 20021203
  2. IMOVANE [Suspect]
     Dates: start: 20020701, end: 20021203
  3. GAVISCON [Suspect]
     Dates: start: 20020901, end: 20021203
  4. TEMESTA [Suspect]
     Dates: start: 20030701
  5. PROPYLTHIOURACIL [Suspect]
     Dates: start: 20020901, end: 20021203
  6. ATACAND [Concomitant]
  7. FORLAX [Concomitant]
  8. HEMIGOXINE NATIVELLE [Concomitant]
  9. MOPRAL [Concomitant]
  10. MOTILIUM [Concomitant]
  11. SECTRAL [Concomitant]

REACTIONS (5)
  - ACTIVITIES OF DAILY LIVING IMPAIRED [None]
  - CEREBRAL ATROPHY [None]
  - CONFUSIONAL STATE [None]
  - DELIRIUM [None]
  - DEPRESSION [None]
